FAERS Safety Report 9685919 (Version 1)
Quarter: 2013Q4

REPORT INFORMATION
  Report Type: Spontaneous
  Country: US (occurrence: US)
  Receive Date: 20131113
  Receipt Date: 20131113
  Transmission Date: 20140711
  Serious: No
  Sender: FDA-Public Use
  Company Number: US-ALLERGAN-1312344US

PATIENT
  Age: 84 Year
  Sex: Female

DRUGS (2)
  1. COMBIGAN[R] [Suspect]
     Indication: PRODUCT USED FOR UNKNOWN INDICATION
     Dosage: UNK
     Route: 047
  2. ASPIRIN [Concomitant]
     Dosage: DAILY

REACTIONS (3)
  - Muscular weakness [Unknown]
  - Tinnitus [Unknown]
  - Somnolence [Unknown]
